FAERS Safety Report 6192409-3 (Version None)
Quarter: 2009Q2

REPORT INFORMATION
  Report Type: 
  Country: None (occurrence: None)
  Receive Date: 20090523
  Receipt Date: 20090523
  Transmission Date: 20091009
  Serious: Yes (Other)
  Sender: FDA-Public Use
  Company Number: None

PATIENT
  Sex: Female
  Weight: 59.8748 kg

DRUGS (3)
  1. MUCINEX DM [Suspect]
     Indication: PULMONARY CONGESTION
     Dosage: 1 TABLET EVERY 12 HRS
     Dates: start: 20090518, end: 20090521
  2. DIFLUCAN [Concomitant]
  3. SYNTHROID [Concomitant]

REACTIONS (9)
  - ANOREXIA [None]
  - ANXIETY [None]
  - ASTHENIA [None]
  - BLOOD PRESSURE INCREASED [None]
  - DIZZINESS [None]
  - DYSPNOEA [None]
  - HALLUCINATION [None]
  - LOSS OF CONSCIOUSNESS [None]
  - THIRST [None]
